FAERS Safety Report 4554152-3 (Version None)
Quarter: 2005Q1

REPORT INFORMATION
  Report Type: 
  Country: None (occurrence: None)
  Receive Date: 20050113
  Receipt Date: 20050113
  Transmission Date: 20050727
  Serious: Yes (Other)
  Sender: FDA-Public Use
  Company Number: None

PATIENT
  Age: 70 Year
  Sex: Female

DRUGS (1)
  1. TOPAMAX [Suspect]
     Indication: ESSENTIAL TREMOR
     Dosage: 2(25 MG) BID

REACTIONS (2)
  - HYPOAESTHESIA [None]
  - PARAESTHESIA [None]
